FAERS Safety Report 8447568-6 (Version None)
Quarter: 2012Q2

REPORT INFORMATION
  Report Type: 
  Country: None (occurrence: None)
  Receive Date: 20120619
  Receipt Date: 20120607
  Transmission Date: 20120825
  Serious: Yes (Hospitalization)
  Sender: FDA-Public Use
  Company Number: ZA-UCBSA-032322

PATIENT
  Age: 56 Year
  Sex: Female
  Weight: 44 kg

DRUGS (6)
  1. CIMZIA [Suspect]
     Indication: CROHN'S DISEASE
     Dosage: CDP870-032
     Route: 058
     Dates: start: 20040605, end: 20040802
  2. CIMZIA [Suspect]
     Route: 058
     Dates: start: 20050112
  3. PENTASA [Concomitant]
     Indication: CROHN'S DISEASE
     Route: 048
     Dates: start: 20030101, end: 20110507
  4. AKRINOR [Concomitant]
     Indication: HYPOTENSION
     Route: 048
     Dates: start: 20090605
  5. CIMZIA [Suspect]
     Dosage: CDP870-032
     Route: 058
     Dates: start: 20040830, end: 20041215
  6. CIMZIA [Suspect]
     Route: 058

REACTIONS (1)
  - RENAL TUBULAR ACIDOSIS [None]
